FAERS Safety Report 15917139 (Version 8)
Quarter: 2024Q2

REPORT INFORMATION
  Report Type: Report from Study
  Country: CA (occurrence: CA)
  Receive Date: 20190205
  Receipt Date: 20240424
  Transmission Date: 20240716
  Serious: Yes (Disabling, Other)
  Sender: FDA-Public Use
  Company Number: CA-SA-2016SA017559

PATIENT
  Age: 35 Year
  Sex: Male

DRUGS (16)
  1. ALEMTUZUMAB [Suspect]
     Active Substance: ALEMTUZUMAB
     Indication: Relapsing-remitting multiple sclerosis
     Dosage: 12 MG,QD
     Route: 041
     Dates: start: 20211020, end: 20211022
  2. ALEMTUZUMAB [Suspect]
     Active Substance: ALEMTUZUMAB
     Dosage: 12 MG,QD
     Route: 041
     Dates: start: 20160125, end: 20160127
  3. ACETAMINOPHEN [Concomitant]
     Active Substance: ACETAMINOPHEN
     Dosage: UNK UNK,UNK
     Route: 048
     Dates: start: 20160127, end: 20160127
  4. ACETAMINOPHEN [Concomitant]
     Active Substance: ACETAMINOPHEN
     Dosage: DOSE: 325-650 MG; UNK
     Route: 048
     Dates: start: 20160125, end: 20160127
  5. GRAVOL [Concomitant]
     Active Substance: DIMENHYDRINATE
     Dosage: 50 MG,UNK
     Route: 042
     Dates: start: 20160127, end: 20160127
  6. GRAVOL [Concomitant]
     Active Substance: DIMENHYDRINATE
     Dosage: 50 MG,UNK
     Route: 042
     Dates: start: 20160125, end: 20160127
  7. CANNABIS SATIVA SUBSP. INDICA TOP [Concomitant]
     Active Substance: CANNABIS SATIVA SUBSP. INDICA TOP
     Indication: Relapsing-remitting multiple sclerosis
     Dosage: UNK UNK,PRN
     Route: 065
     Dates: start: 20160126
  8. CANNABIS SATIVA SUBSP. INDICA TOP [Concomitant]
     Active Substance: CANNABIS SATIVA SUBSP. INDICA TOP
  9. NEXIUM I.V. [Concomitant]
     Active Substance: ESOMEPRAZOLE SODIUM
     Dosage: UNK UNK, UNK
  10. CIALIS [Concomitant]
     Active Substance: TADALAFIL
     Dosage: 5 MG,QD
  11. FISH OIL [Concomitant]
     Active Substance: FISH OIL
     Dosage: UNK, UNK
     Route: 065
  12. FISH OIL [Concomitant]
     Active Substance: FISH OIL
  13. METHYLPREDNISOLONE [Concomitant]
     Active Substance: METHYLPREDNISOLONE
     Indication: Premedication
     Dosage: 1 G,UNK
     Route: 042
     Dates: start: 20160125, end: 20160127
  14. ACYCLOVIR [Concomitant]
     Active Substance: ACYCLOVIR
     Indication: Premedication
     Dosage: 200 MG,UNK
     Route: 048
     Dates: start: 20160125, end: 20160225
  15. CIMETIDINE [Concomitant]
     Active Substance: CIMETIDINE
     Indication: Premedication
     Dosage: 200 MG,UNK
     Route: 048
     Dates: start: 20160125, end: 20160127
  16. BENADRYL [Concomitant]
     Active Substance: DIPHENHYDRAMINE HYDROCHLORIDE
     Indication: Premedication
     Dosage: 50 MG,UNK
     Dates: start: 20160125, end: 20160127

REACTIONS (44)
  - Mobility decreased [Not Recovered/Not Resolved]
  - Balance disorder [Recovered/Resolved]
  - Hallucination [Recovered/Resolved]
  - Hallucinations, mixed [Recovered/Resolved]
  - Multiple sclerosis relapse [Not Recovered/Not Resolved]
  - Somnolence [Recovered/Resolved]
  - Nasopharyngitis [Recovered/Resolved]
  - Sneezing [Recovered/Resolved]
  - Rhinorrhoea [Recovered/Resolved]
  - Tanning [Recovered/Resolved]
  - Hepatic enzyme increased [Not Recovered/Not Resolved]
  - Vomiting [Recovered/Resolved]
  - Cognitive disorder [Recovered/Resolved]
  - Feeling abnormal [Recovered/Resolved]
  - Eosinophil count increased [Recovered/Resolved]
  - Red cell distribution width increased [Recovered/Resolved]
  - Muscle twitching [Recovered/Resolved]
  - Discomfort [Recovered/Resolved]
  - Blood creatinine decreased [Recovered/Resolved]
  - Throat irritation [Recovered/Resolved]
  - Urine abnormality [Not Recovered/Not Resolved]
  - Hypoaesthesia [Recovered/Resolved]
  - Nausea [Not Recovered/Not Resolved]
  - Insomnia [Recovered/Resolved]
  - Dizziness [Recovered/Resolved]
  - Chills [Recovered/Resolved]
  - Fatigue [Not Recovered/Not Resolved]
  - Lymphocyte count decreased [Recovered/Resolved]
  - Ear infection [Recovered/Resolved]
  - White blood cell count decreased [Recovered/Resolved]
  - Neutrophil count decreased [Recovered/Resolved]
  - Urine ketone body present [Recovered/Resolved]
  - Dysarthria [Recovered/Resolved]
  - Increased tendency to bruise [Not Recovered/Not Resolved]
  - Balance disorder [Not Recovered/Not Resolved]
  - Fall [Not Recovered/Not Resolved]
  - Muscle spasticity [Not Recovered/Not Resolved]
  - Asthenia [Not Recovered/Not Resolved]
  - Pain [Not Recovered/Not Resolved]
  - Condition aggravated [Not Recovered/Not Resolved]
  - Exposure via body fluid [Not Recovered/Not Resolved]
  - Pregnancy of partner [Unknown]
  - Herpes zoster [Recovering/Resolving]
  - Fatigue [Not Recovered/Not Resolved]

NARRATIVE: CASE EVENT DATE: 20160125
